FAERS Safety Report 20249362 (Version 1)
Quarter: 2021Q4

REPORT INFORMATION
  Report Type: Spontaneous
  Country: US (occurrence: None)
  Receive Date: 20211229
  Receipt Date: 20211229
  Transmission Date: 20220303
  Serious: Yes (Hospitalization)
  Sender: FDA-Public Use
  Company Number: None

PATIENT
  Age: 76 Year
  Sex: Male

DRUGS (2)
  1. CASIRIVIMAB [Suspect]
     Active Substance: CASIRIVIMAB
     Indication: SARS-CoV-2 test positive
     Dosage: OTHER FREQUENCY : X 1;?
     Route: 041
  2. IMDEVIMAB [Suspect]
     Active Substance: IMDEVIMAB
     Indication: SARS-CoV-2 test positive
     Dosage: OTHER FREQUENCY : X 1;?
     Route: 041

REACTIONS (7)
  - Infusion related reaction [None]
  - Haemoptysis [None]
  - Hypoxia [None]
  - Pyrexia [None]
  - Lethargy [None]
  - Sputum discoloured [None]
  - Lung infiltration [None]

NARRATIVE: CASE EVENT DATE: 20211209
